FAERS Safety Report 7783274-9 (Version None)
Quarter: 2011Q3

REPORT INFORMATION
  Report Type: 
  Country: None (occurrence: None)
  Receive Date: 20110927
  Receipt Date: 20110927
  Transmission Date: 20111222
  Serious: No
  Sender: FDA-Public Use
  Company Number: None

PATIENT
  Age: 72 Year
  Sex: Male
  Weight: 122.7 kg

DRUGS (1)
  1. PRASUGREL [Suspect]
     Indication: STENT PLACEMENT
     Dosage: 1 TAB EVERY DAY PO
     Route: 048
     Dates: start: 20110620, end: 20110624

REACTIONS (3)
  - ABDOMINAL PAIN [None]
  - ASTHENIA [None]
  - DIZZINESS [None]
